FAERS Safety Report 23057148 (Version 1)
Quarter: 2023Q4

REPORT INFORMATION
  Report Type: Spontaneous
  Country: US (occurrence: US)
  Receive Date: 20231012
  Receipt Date: 20231012
  Transmission Date: 20240110
  Serious: Yes (Death, Hospitalization)
  Sender: FDA-Public Use
  Company Number: US-COHERUS BIOSCIENCES, Inc.-2023-COH-US000488

PATIENT

DRUGS (5)
  1. UDENYCA [Suspect]
     Active Substance: PEGFILGRASTIM-CBQV
     Indication: Product used for unknown indication
     Dosage: 0.6 MG
     Route: 042
     Dates: start: 20230201
  2. UDENYCA [Suspect]
     Active Substance: PEGFILGRASTIM-CBQV
     Dosage: 0.6 MG
     Route: 042
     Dates: start: 20230215
  3. UDENYCA [Suspect]
     Active Substance: PEGFILGRASTIM-CBQV
     Dosage: 0.6 MG
     Route: 042
     Dates: start: 20230301
  4. IRON [Concomitant]
     Active Substance: IRON
     Dosage: UNK
  5. FLUOROURACIL [Concomitant]
     Active Substance: FLUOROURACIL
     Dosage: UNK

REACTIONS (2)
  - Death [Fatal]
  - Hospitalisation [Unknown]
